FAERS Safety Report 9556459 (Version 1)
Quarter: 2013Q3

REPORT INFORMATION
  Report Type: Spontaneous
  Country: US (occurrence: None)
  Receive Date: 20130906
  Receipt Date: 20130906
  Transmission Date: 20140515
  Serious: Yes (Other)
  Sender: FDA-Public Use
  Company Number: 163-POMAL-13061186

PATIENT
  Age: 65 Year
  Sex: Male

DRUGS (12)
  1. POMALYST [Suspect]
     Indication: PLASMA CELL MYELOMA
     Dosage: CAPSULE, 2 MG, 21 IN 28 D, PO
     Dates: start: 20130417, end: 20130605
  2. ASPIRIN (ACETYLSALICYLIC ACID) [Concomitant]
  3. BRIMONIDINE [Concomitant]
  4. DARBEPOETIN [Concomitant]
  5. DENOSUMAB [Concomitant]
  6. DEXAMETHASONE [Concomitant]
  7. FOLIC ACID [Concomitant]
  8. LATANOPROST [Concomitant]
  9. METOPROLOL TARTRATE [Concomitant]
  10. OMEPRAZOLE [Concomitant]
  11. OXYCODONE [Concomitant]
  12. PAMIDRONATE (PAMIDRONATE DISODIUM) [Concomitant]

REACTIONS (1)
  - Plasma cell myeloma [None]
